FAERS Safety Report 17709142 (Version 1)
Quarter: 2020Q2

REPORT INFORMATION
  Report Type: Spontaneous
  Country: US (occurrence: US)
  Receive Date: 20200426
  Receipt Date: 20200426
  Transmission Date: 20200714
  Serious: No
  Sender: FDA-Public Use
  Company Number: US-GLAXOSMITHKLINE-US2020AMR069732

PATIENT
  Sex: Female

DRUGS (2)
  1. AVASTIN (ATORVASTATIN) [Suspect]
     Active Substance: ATORVASTATIN CALCIUM
     Indication: PRODUCT USED FOR UNKNOWN INDICATION
     Dosage: UNK
  2. ZEJULA [Suspect]
     Active Substance: NIRAPARIB
     Indication: PRODUCT USED FOR UNKNOWN INDICATION
     Dosage: 100 MG, FOR 2 OUT OF 3 DAYS
     Dates: start: 20190321

REACTIONS (2)
  - Carbohydrate antigen 125 increased [Unknown]
  - Blood pressure increased [Unknown]
